FAERS Safety Report 8062915 (Version 2)
Quarter: 2012Q4

REPORT INFORMATION
  Report Type: Spontaneous
  Country: US (occurrence: None)
  Receive Date: 20110721
  Receipt Date: 20120426
  Transmission Date: 20130627
  Serious: Yes (Hospitalization)
  Sender: FDA-Public Use
  Company Number: 2011GW000378

PATIENT
  Age: 82 Year
  Sex: Female

DRUGS (1)
  1. ZYCLARA [Suspect]
     Indication: ACTINIC KERATOSIS
     Dosage: 3.75 PCT; HS; TOP
     Route: 061
     Dates: start: 201106, end: 20110625

REACTIONS (7)
  - DEHYDRATION [None]
  - BLOOD SODIUM DECREASED [None]
  - HEADACHE [None]
  - FATIGUE [None]
  - DECREASED APPETITE [None]
  - APPLICATION SITE SCAB [None]
  - APPLICATION SITE ULCER [None]
